FAERS Safety Report 6824667-3 (Version None)
Quarter: 2010Q3

REPORT INFORMATION
  Report Type: 
  Country: None (occurrence: None)
  Receive Date: 20100708
  Receipt Date: 20061107
  Transmission Date: 20110219
  Serious: No
  Sender: FDA-Public Use
  Company Number: US-PFIZER INC-2006139653

PATIENT
  Sex: Female
  Weight: 62.14 kg

DRUGS (9)
  1. CHANTIX [Suspect]
     Route: 048
     Dates: start: 20061029
  2. NOVOLOG [Concomitant]
  3. LANTUS [Concomitant]
  4. METFORMIN HCL [Concomitant]
  5. LASIX [Concomitant]
  6. VYTORIN [Concomitant]
  7. SINGULAIR [Concomitant]
  8. ADVAIR DISKUS 100/50 [Concomitant]
  9. PREDNISONE [Concomitant]

REACTIONS (1)
  - NAUSEA [None]
